FAERS Safety Report 5615451-7 (Version None)
Quarter: 2008Q1

REPORT INFORMATION
  Report Type: 
  Country: None (occurrence: None)
  Receive Date: 20080131
  Receipt Date: 20080121
  Transmission Date: 20080703
  Serious: Yes (Death, Other)
  Sender: FDA-Public Use
  Company Number: GXKR2008KR00982

PATIENT
  Age: 59 Year
  Sex: Male

DRUGS (2)
  1. CARBOPLATIN [Suspect]
     Indication: NON-SMALL CELL LUNG CANCER STAGE IIIA
  2. PACLITAXEL [Suspect]
     Indication: NON-SMALL CELL LUNG CANCER STAGE IIIA

REACTIONS (14)
  - BACTERIAL SEPSIS [None]
  - CARDIAC ARREST [None]
  - CHILLS [None]
  - CHROMATURIA [None]
  - HAEMOLYTIC ANAEMIA [None]
  - HYPOXIA [None]
  - JAUNDICE [None]
  - LETHARGY [None]
  - LIVER ABSCESS [None]
  - METABOLIC ACIDOSIS [None]
  - MORGANELLA INFECTION [None]
  - NEUTROPENIC SEPSIS [None]
  - PYREXIA [None]
  - SOMNOLENCE [None]
